FAERS Safety Report 10289577 (Version 2)
Quarter: 2014Q4

REPORT INFORMATION
  Report Type: Report from Study
  Country: US (occurrence: US)
  Receive Date: 20140710
  Receipt Date: 20141209
  Transmission Date: 20150528
  Serious: Yes (Other)
  Sender: FDA-Public Use
  Company Number: US-ALEXION PHARMACEUTICALS INC.-A201402456

PATIENT

DRUGS (1)
  1. SOLIRIS [Suspect]
     Active Substance: ECULIZUMAB
     Indication: PAROXYSMAL NOCTURNAL HAEMOGLOBINURIA
     Dosage: UNK,Q2W
     Dates: start: 201401, end: 201406

REACTIONS (4)
  - Myelodysplastic syndrome [Unknown]
  - Haemoglobin decreased [Unknown]
  - Exposure during pregnancy [Recovered/Resolved]
  - Fatigue [Unknown]
